FAERS Safety Report 7582389-8 (Version None)
Quarter: 2011Q2

REPORT INFORMATION
  Report Type: 
  Country: None (occurrence: None)
  Receive Date: 20110630
  Receipt Date: 20110621
  Transmission Date: 20111010
  Serious: Yes (Other)
  Sender: FDA-Public Use
  Company Number: US-JNJFOC-20110611335

PATIENT
  Age: 36 Year
  Sex: Female
  Weight: 60.78 kg

DRUGS (4)
  1. MONISTAT 7 [Suspect]
     Indication: PRODUCT USED FOR UNKNOWN INDICATION
     Route: 067
     Dates: start: 20110619
  2. MONISTAT 7 [Suspect]
     Route: 067
  3. B-6 [Concomitant]
     Route: 065
  4. PRENATAL VITAMINS [Concomitant]
     Route: 065

REACTIONS (2)
  - VAGINAL HAEMORRHAGE [None]
  - DRUG EXPOSURE DURING PREGNANCY [None]
